FAERS Safety Report 8931288 (Version 3)
Quarter: 2013Q2

REPORT INFORMATION
  Report Type: Report from Study
  Country: JP (occurrence: JP)
  Receive Date: 20121128
  Receipt Date: 20130605
  Transmission Date: 20140414
  Serious: Yes (Other)
  Sender: FDA-Public Use
  Company Number: JP-VERTEX PHARMACEUTICAL INC.-2012-025060

PATIENT
  Age: 48 Year
  Sex: Male

DRUGS (24)
  1. VX-950 (TELAPREVIR) [Suspect]
     Indication: CHRONIC HEPATITIS C
     Dosage: 1500 MG, QD
     Route: 048
     Dates: start: 20120808, end: 20121031
  2. REBETOL [Suspect]
     Indication: CHRONIC HEPATITIS C
     Dosage: 600 MG, QD
     Route: 048
     Dates: start: 20120808, end: 20120919
  3. REBETOL [Suspect]
     Dosage: 600 MG ON ODD DAYS/ 400 MG ON EVEN DAYS
     Route: 048
     Dates: start: 20120920, end: 20121002
  4. REBETOL [Suspect]
     Dosage: 600 MG, QD
     Route: 048
     Dates: start: 20121003, end: 20121030
  5. REBETOL [Suspect]
     Dosage: 800 MG, QD
     Route: 048
     Dates: start: 20121031, end: 20130123
  6. PEGINTRON [Suspect]
     Indication: CHRONIC HEPATITIS C
     Dosage: 1.0 ?G/KG, QW
     Route: 058
     Dates: start: 20120808, end: 20120814
  7. PEGINTRON [Suspect]
     Dosage: 1.3 ?G/KG, QW
     Route: 058
     Dates: start: 20120815, end: 20120904
  8. PEGINTRON [Suspect]
     Dosage: 1.1 ?G/KG, QW
     Route: 058
     Dates: start: 20120905, end: 20120911
  9. PEGINTRON [Suspect]
     Dosage: 1.3 ?G/KG, QW
     Route: 058
     Dates: start: 20120912, end: 20120918
  10. PEGINTRON [Suspect]
     Dosage: 1.1 ?G/KG, QW
     Route: 058
     Dates: start: 20120919, end: 20121009
  11. PEGINTRON [Suspect]
     Dosage: 1.3 ?G/KG, QW
     Route: 058
     Dates: start: 20121010, end: 20121023
  12. PEGINTRON [Suspect]
     Dosage: 1.4 ?G/KG, QW
     Route: 058
     Dates: start: 20121024, end: 20130116
  13. TAKEPRON [Concomitant]
     Dosage: 15 MG, QD
     Route: 048
  14. ALPRAZOLAM [Concomitant]
     Dosage: 1.2 MG, QD
     Route: 048
  15. LUVOX [Concomitant]
     Dosage: UNK, PRN
     Route: 048
  16. DIAZEPAM [Concomitant]
     Dosage: 5 MG, PRN
     Route: 048
  17. SYMBICORT [Concomitant]
     Dosage: 2 INHALATIONS, QD
     Route: 055
  18. ALLEGRA [Concomitant]
     Dosage: 120 MG, QD
     Route: 048
  19. FULMETA [Concomitant]
     Dosage: UNK, QD
     Route: 061
  20. VONFENAC [Concomitant]
     Dosage: 25 MG, PRN
     Route: 054
     Dates: start: 20120808
  21. VONFENAC [Concomitant]
     Dosage: 25 MG, QD
     Route: 054
  22. VONFENAC [Concomitant]
     Dosage: 25 MG, PRN
     Route: 054
     Dates: end: 20130116
  23. URSO [Concomitant]
     Dosage: 600 MG, QD
     Route: 048
  24. SULPIRIDE [Concomitant]
     Dosage: UNK, PRN
     Route: 048

REACTIONS (1)
  - Retinopathy [Recovered/Resolved]
